FAERS Safety Report 19047168 (Version 2)
Quarter: 2021Q2

REPORT INFORMATION
  Report Type: Report from Study
  Country: HR (occurrence: HR)
  Receive Date: 20210323
  Receipt Date: 20210420
  Transmission Date: 20210717
  Serious: Yes (Hospitalization)
  Sender: FDA-Public Use
  Company Number: HR-ROCHE-2793088

PATIENT
  Age: 49 Year
  Sex: Female
  Weight: 73.2 kg

DRUGS (15)
  1. PARACETAMOL [Concomitant]
     Active Substance: ACETAMINOPHEN
     Indication: PREMEDICATION
     Route: 048
     Dates: start: 20190208, end: 20190208
  2. PARACETAMOL [Concomitant]
     Active Substance: ACETAMINOPHEN
     Route: 048
     Dates: start: 20190222, end: 20190222
  3. CHLOROPYRAMINE [Concomitant]
     Active Substance: CHLOROPYRAMINE
     Indication: PREMEDICATION
     Route: 030
     Dates: start: 20190208, end: 20190208
  4. PARACETAMOL [Concomitant]
     Active Substance: ACETAMINOPHEN
     Route: 048
     Dates: start: 20190821, end: 20190821
  5. OCRELIZUMAB. [Suspect]
     Active Substance: OCRELIZUMAB
     Indication: RELAPSING-REMITTING MULTIPLE SCLEROSIS
     Dosage: ON 20/JAN/2021, SHE RECEIVED THE MOST RECENT DOSE OF OCRELIZUMAB (600 MG) PRIOR TO ONSET OF SERIOUS
     Route: 042
     Dates: start: 20190208
  6. METHYLPREDNISOLONE. [Suspect]
     Active Substance: METHYLPREDNISOLONE
     Indication: PREMEDICATION
     Dosage: ON 22/FEB/2019, 21/AUG/2019, 29/JAN/2020, 30/JUL/2020 AND 20/JAN/2021 SHE RECEIVED THE SUBSEQUENT TH
     Route: 042
     Dates: start: 20190208
  7. PARACETAMOL [Concomitant]
     Active Substance: ACETAMINOPHEN
     Route: 048
     Dates: start: 20210120, end: 20210120
  8. BULARDI [Concomitant]
     Indication: PROPHYLAXIS
     Dosage: 1 TABLET
     Route: 048
     Dates: start: 20210310, end: 20210403
  9. CHLOROPYRAMINE [Concomitant]
     Active Substance: CHLOROPYRAMINE
     Route: 030
     Dates: start: 20190222, end: 20190222
  10. CHLOROPYRAMINE [Concomitant]
     Active Substance: CHLOROPYRAMINE
     Route: 030
     Dates: start: 20200129, end: 20200129
  11. CHLOROPYRAMINE [Concomitant]
     Active Substance: CHLOROPYRAMINE
     Route: 030
     Dates: start: 20210120, end: 20210120
  12. PARACETAMOL [Concomitant]
     Active Substance: ACETAMINOPHEN
     Route: 048
     Dates: start: 20200730, end: 20200730
  13. CHLOROPYRAMINE [Concomitant]
     Active Substance: CHLOROPYRAMINE
     Route: 030
     Dates: start: 20200730, end: 20200730
  14. PARACETAMOL [Concomitant]
     Active Substance: ACETAMINOPHEN
     Route: 048
     Dates: start: 20200129, end: 20200129
  15. CHLOROPYRAMINE [Concomitant]
     Active Substance: CHLOROPYRAMINE
     Route: 030
     Dates: start: 20190821, end: 20190821

REACTIONS (1)
  - COVID-19 pneumonia [Recovered/Resolved]

NARRATIVE: CASE EVENT DATE: 20210307
